FAERS Safety Report 6102333-X (Version None)
Quarter: 2009Q1

REPORT INFORMATION
  Report Type: 
  Country: None (occurrence: None)
  Receive Date: 20090227
  Receipt Date: 20080903
  Transmission Date: 20090719
  Serious: Yes (Other)
  Sender: FDA-Public Use
  Company Number: 584202

PATIENT
  Age: 13 Year
  Sex: Female

DRUGS (1)
  1. ACCUTANE [Suspect]
     Indication: DRUG USE FOR UNKNOWN INDICATION
     Dates: start: 19960101

REACTIONS (5)
  - ARTHRALGIA [None]
  - BONE PAIN [None]
  - DEPRESSION [None]
  - DRY SKIN [None]
  - MYALGIA [None]
